FAERS Safety Report 13251411 (Version 1)
Quarter: 2017Q1

REPORT INFORMATION
  Report Type: Report from Study
  Country: JP (occurrence: JP)
  Receive Date: 20170220
  Receipt Date: 20170220
  Transmission Date: 20170428
  Serious: Yes (Other)
  Sender: FDA-Public Use
  Company Number: JP-ASTELLAS-2008JP005349

PATIENT
  Age: 38 Year
  Sex: Male
  Weight: 64 kg

DRUGS (41)
  1. RINDERON                           /00008501/ [Suspect]
     Active Substance: BETAMETHASONE
     Dosage: 1MG, 0.75MG, EVERY OTHER DAY
     Route: 048
     Dates: start: 20110911, end: 20120115
  2. DEPAKENE [Concomitant]
     Active Substance: VALPROIC ACID
     Indication: PRODUCT USED FOR UNKNOWN INDICATION
     Route: 048
     Dates: start: 20070721, end: 20110612
  3. RINDERON                           /00008501/ [Suspect]
     Active Substance: BETAMETHASONE
     Dosage: 0.75 MG, ONCE DAILY
     Route: 048
     Dates: start: 20120116, end: 20140805
  4. RINDERON                           /00008501/ [Suspect]
     Active Substance: BETAMETHASONE
     Route: 048
     Dates: start: 20140806, end: 20141108
  5. ALOSITOL [Concomitant]
     Active Substance: ALLOPURINOL
     Indication: PRODUCT USED FOR UNKNOWN INDICATION
     Route: 048
     Dates: end: 20151017
  6. VOLTAREN [Concomitant]
     Active Substance: DICLOFENAC SODIUM
     Indication: GOUT
     Route: 048
     Dates: start: 20100708, end: 20100721
  7. FLOMOX [Concomitant]
     Active Substance: CEFCAPENE PIVOXIL HYDROCHLORIDE HYDRATE
     Indication: PHARYNGITIS
     Route: 048
     Dates: start: 20101104, end: 20101110
  8. NERISONA [Concomitant]
     Active Substance: DIFLUCORTOLONE VALERATE
     Indication: SYSTEMIC LUPUS ERYTHEMATOSUS
     Dosage: ADEQUATE DOSE
     Route: 065
     Dates: start: 20130511
  9. TACROLIMUS. [Suspect]
     Active Substance: TACROLIMUS
     Indication: LUPUS NEPHRITIS
     Route: 048
     Dates: start: 20070626, end: 20151017
  10. RYTHMODAN [Concomitant]
     Active Substance: DISOPYRAMIDE
     Indication: PRODUCT USED FOR UNKNOWN INDICATION
     Route: 048
     Dates: start: 20071023, end: 20080308
  11. HERBAL NOS [Concomitant]
     Active Substance: HERBALS
     Indication: MUSCLE TWITCHING
     Route: 048
     Dates: start: 20080513, end: 20080712
  12. HERBAL NOS [Concomitant]
     Active Substance: HERBALS
     Route: 048
     Dates: start: 20110514, end: 20120309
  13. RINDERON                           /00008501/ [Suspect]
     Active Substance: BETAMETHASONE
     Indication: LUPUS NEPHRITIS
     Route: 048
     Dates: start: 20080209, end: 20080512
  14. PREDNISOLONE. [Concomitant]
     Active Substance: PREDNISOLONE
     Indication: LUPUS NEPHRITIS
     Route: 048
     Dates: end: 20070819
  15. GASTER [Concomitant]
     Active Substance: FAMOTIDINE
     Indication: PROPHYLAXIS
     Route: 048
     Dates: end: 20151017
  16. MYSER [Concomitant]
     Active Substance: DIFLUPREDNATE
     Indication: PRODUCT USED FOR UNKNOWN INDICATION
     Dosage: ADEQUATE DOSE
     Route: 061
     Dates: start: 20071206, end: 20080209
  17. CRAVIT [Concomitant]
     Active Substance: LEVOFLOXACIN
     Indication: CELLULITIS
     Route: 048
     Dates: start: 20080610, end: 20080617
  18. LOXONIN [Concomitant]
     Active Substance: LOXOPROFEN SODIUM
     Indication: PHARYNGITIS
     Route: 048
     Dates: start: 20101104, end: 20101110
  19. PREDNISOLONE. [Concomitant]
     Active Substance: PREDNISOLONE
     Route: 048
     Dates: start: 20141109, end: 20151010
  20. PRERAN [Concomitant]
     Active Substance: TRANDOLAPRIL
     Indication: PRODUCT USED FOR UNKNOWN INDICATION
     Route: 048
     Dates: end: 20151017
  21. HERBAL NOS [Concomitant]
     Active Substance: HERBALS
     Route: 048
     Dates: start: 20081011, end: 20090214
  22. NICHICODE [Concomitant]
     Indication: PHARYNGITIS
     Route: 048
     Dates: start: 20110212, end: 20110218
  23. LAMISIL [Concomitant]
     Active Substance: TERBINAFINE HYDROCHLORIDE
     Indication: DERMATOPHYTOSIS OF NAIL
     Route: 065
     Dates: start: 20100109, end: 20100409
  24. MENTHOL. [Concomitant]
     Active Substance: MENTHOL
     Indication: GASTROENTERITIS
     Dosage: 0.3 G, ONCE DAILY
     Route: 048
     Dates: start: 20071112, end: 20071116
  25. HUSCODE [Concomitant]
     Active Substance: CHLORPHENIRAMINE MALEAT\DIHYDROCODEINE PHOSPHATE\METHYLEPHEDRINE HYDROCHLORIDE, DL-
     Indication: PHARYNGITIS
     Route: 048
     Dates: start: 20080712, end: 20080718
  26. RINDERON                           /00008501/ [Suspect]
     Active Substance: BETAMETHASONE
     Route: 048
     Dates: start: 20080513, end: 20100409
  27. RINDERON                           /00008501/ [Suspect]
     Active Substance: BETAMETHASONE
     Route: 048
     Dates: start: 20100508, end: 20110910
  28. RINDERON                           /00008501/ [Suspect]
     Active Substance: BETAMETHASONE
     Route: 048
     Dates: start: 20151011, end: 20151017
  29. PREDNISOLONE. [Concomitant]
     Active Substance: PREDNISOLONE
     Route: 048
     Dates: start: 20070820, end: 20080208
  30. CRAVIT [Concomitant]
     Active Substance: LEVOFLOXACIN
     Indication: PHARYNGITIS
     Route: 048
     Dates: start: 20080712, end: 20080718
  31. FLOMOX [Concomitant]
     Active Substance: CEFCAPENE PIVOXIL HYDROCHLORIDE HYDRATE
     Route: 048
     Dates: start: 20110212, end: 20110218
  32. MUCODYNE [Concomitant]
     Active Substance: CARBOCYSTEINE
     Indication: PHARYNGITIS
     Route: 048
     Dates: start: 20110212, end: 20110218
  33. ANTEBATE [Concomitant]
     Active Substance: BETAMETHASONE DIPROPIONATE
     Indication: SYSTEMIC LUPUS ERYTHEMATOSUS
     Dosage: ADEQUATE DOSE
     Route: 065
     Dates: end: 20131012
  34. BIOFERMIN                          /01617201/ [Concomitant]
     Active Substance: BACILLUS SUBTILIS\LACTOBACILLUS ACIDOPHILUS\STREPTOCOCCUS FAECAIS
     Indication: GASTROENTERITIS
     Dosage: 2.1 G, ONCE DAILY
     Route: 048
     Dates: start: 20071112, end: 20071116
  35. PL [Concomitant]
     Active Substance: ACETAMINOPHEN\CAFFEINE\PROMETHAZINE\SALICYLAMIDE
     Indication: PHARYNGITIS
     Route: 048
     Dates: start: 20080712, end: 20080718
  36. BAYASPIRIN [Concomitant]
     Active Substance: ASPIRIN
     Indication: PRODUCT USED FOR UNKNOWN INDICATION
     Route: 048
     Dates: end: 20151017
  37. RINDERON                           /00008501/ [Suspect]
     Active Substance: BETAMETHASONE
     Dosage: 1.25 MG, 1 MG, EVERY OTHER DAY
     Route: 048
     Dates: start: 20100410, end: 20100507
  38. PERSANTIN [Concomitant]
     Active Substance: DIPYRIDAMOLE
     Indication: LUPUS NEPHRITIS
     Route: 048
     Dates: end: 20151017
  39. NAUZELIN [Concomitant]
     Active Substance: DOMPERIDONE
     Indication: GASTROENTERITIS
     Route: 065
     Dates: start: 20071112, end: 20071116
  40. ALBUMIN TANNATE [Concomitant]
     Active Substance: ALBUMIN BOVINE\TANNIC ACID
     Indication: GASTROENTERITIS
     Dosage: 2.1 G, ONCE DAILY
     Route: 048
     Dates: start: 20071112, end: 20071116
  41. TOPSYM [Concomitant]
     Indication: SYSTEMIC LUPUS ERYTHEMATOSUS
     Dosage: ADEQUATE DOSE
     Route: 061
     Dates: start: 20080710, end: 20080913

REACTIONS (8)
  - Nephrotic syndrome [Unknown]
  - Palpitations [Recovering/Resolving]
  - Gastroenteritis [Recovered/Resolved]
  - Dermatophytosis of nail [Recovered/Resolved]
  - Pharyngitis [Recovered/Resolved]
  - Muscle twitching [Recovered/Resolved]
  - Gout [Recovered/Resolved]
  - Cellulitis [Recovered/Resolved]

NARRATIVE: CASE EVENT DATE: 20071023
